FAERS Safety Report 6734491-8 (Version None)
Quarter: 2010Q2

REPORT INFORMATION
  Report Type: 
  Country: None (occurrence: None)
  Receive Date: 20100520
  Receipt Date: 20100507
  Transmission Date: 20101027
  Serious: Yes (Hospitalization)
  Sender: FDA-Public Use
  Company Number: ES-ELI_LILLY_AND_COMPANY-ES201005001986

PATIENT
  Sex: Female
  Weight: 79.8 kg

DRUGS (7)
  1. FORTEO [Suspect]
     Indication: OSTEOPOROSIS
     Dosage: 20 UG, DAILY (1/D)
     Route: 058
     Dates: start: 20100416
  2. ENALAPRIL [Concomitant]
     Indication: HYPERTENSION
     Dosage: 20 MG, DAILY (1/D)
     Route: 048
  3. OMEPRAZOLE [Concomitant]
     Indication: GASTRIC DISORDER
     Dosage: 40 MG, DAILY (1/D)
     Route: 048
  4. ACABEL [Concomitant]
     Indication: INFLAMMATION
     Dosage: 8 MG, DAILY (1/D)
     Route: 048
  5. LEVOFLOXACINO [Concomitant]
     Indication: INFECTION
     Dosage: UNK, DAILY (1/D)
     Route: 048
     Dates: start: 20100401
  6. RINUTAN [Concomitant]
     Indication: INFECTION
     Dosage: 600 MG, DAILY (1/D)
     Route: 048
  7. FETO-LONGORAL [Concomitant]
     Indication: SLEEP DISORDER
     Dosage: 10 MG, DAILY (1/D)
     Route: 048

REACTIONS (1)
  - JOINT DISLOCATION [None]
